FAERS Safety Report 14456883 (Version 2)
Quarter: 2018Q4

REPORT INFORMATION
  Report Type: Spontaneous
  Country: US (occurrence: US)
  Receive Date: 20180130
  Receipt Date: 20181015
  Transmission Date: 20190204
  Serious: Yes (Death, Life-Threatening, Hospitalization, Other)
  Sender: FDA-Public Use
  Company Number: US-LUPIN PHARMACEUTICALS INC.-2018-00323

PATIENT
  Age: 66 Year
  Sex: Female

DRUGS (1)
  1. LISINOPRIL. [Suspect]
     Active Substance: LISINOPRIL
     Indication: HYPERTENSION
     Dosage: UNK
     Route: 065

REACTIONS (6)
  - Pulse absent [Fatal]
  - Angioedema [Unknown]
  - Dyspnoea [Unknown]
  - Oxygen saturation decreased [Unknown]
  - Tracheo-oesophageal fistula [Unknown]
  - Stridor [Unknown]
